FAERS Safety Report 18375461 (Version 1)
Quarter: 2020Q4

REPORT INFORMATION
  Report Type: Spontaneous
  Country: US (occurrence: US)
  Receive Date: 20201012
  Receipt Date: 20201012
  Transmission Date: 20210114
  Serious: Yes (Other)
  Sender: FDA-Public Use
  Company Number: None

PATIENT
  Age: 64 Year
  Sex: Male
  Weight: 163.3 kg

DRUGS (23)
  1. PRNS USED: ACETAMINOPHEN, DIPHENHYDRAMINE, GUAIFENESIN/DEXTROMET [Concomitant]
     Dates: start: 20201005, end: 20201012
  2. CHOLECALCIFEROL [Concomitant]
     Active Substance: CHOLECALCIFEROL
     Dates: start: 20201005, end: 20201012
  3. EPOPROSTENOL. [Concomitant]
     Active Substance: EPOPROSTENOL
     Dates: start: 20201008, end: 20201012
  4. LISINOPRIL/HYDROCHLOR [Concomitant]
     Dates: start: 20201007, end: 20201008
  5. AZITHROMYCIN INJECTION [Concomitant]
     Dates: start: 20201005, end: 20201012
  6. AMIODARONE INJECTION [Concomitant]
     Active Substance: AMIODARONE
     Dates: start: 20201008, end: 20201012
  7. DEXAMETHASONE NA PHOS [Concomitant]
     Dates: start: 20201005, end: 20201012
  8. IPRATROPIUM/ALBUTEROL   INH [Concomitant]
     Dates: start: 20201005, end: 20201011
  9. NOREPINEPHRINE DRIP [Concomitant]
     Dates: start: 20201008, end: 20201012
  10. OXYCODONE, POTASSIUM CHLORIDE, PROPOFOL, TRAZODONE, VASOPRESSIN, ZINC [Concomitant]
  11. PANTOPRAZOLE (STARTED 10/5) , AND ALSO ZOSYN (STARTED 10/9) [Concomitant]
  12. CEFTRIAXONE. [Concomitant]
     Active Substance: CEFTRIAXONE
     Dates: start: 20201004, end: 20201009
  13. ASCORBIC ACID INJECTION [Concomitant]
     Dates: start: 20201005, end: 20201009
  14. CISATRACURIUM  DRIP [Concomitant]
     Dates: start: 20201008, end: 20201012
  15. MAGNESIUM SULFATE. [Concomitant]
     Active Substance: MAGNESIUM SULFATE
     Dates: start: 20201008, end: 20201012
  16. REMDESIVIR. [Suspect]
     Active Substance: REMDESIVIR
     Indication: COVID-19
     Dosage: ?          OTHER FREQUENCY:ONCE;?
     Route: 042
     Dates: start: 20201005, end: 20201005
  17. REMDESIVIR. [Suspect]
     Active Substance: REMDESIVIR
     Indication: COVID-19
     Route: 042
     Dates: start: 20201006, end: 20201009
  18. CALCIUM CARBONATE. [Concomitant]
     Active Substance: CALCIUM CARBONATE
     Dates: start: 20201006, end: 20201012
  19. GUAIFENESIN. [Concomitant]
     Active Substance: GUAIFENESIN
     Dates: start: 20201005, end: 20201012
  20. HEPARIN [Concomitant]
     Active Substance: HEPARIN SODIUM
     Dates: start: 20201008, end: 20201012
  21. SLIDING SCALE REGULAR INSULIN [Concomitant]
     Dates: start: 20201005, end: 20201012
  22. ESCITALOPRAM [Concomitant]
     Active Substance: ESCITALOPRAM OXALATE
     Dates: start: 20201008, end: 20201012
  23. FENTANYL DRIP [Concomitant]
     Dates: start: 20201008, end: 20201012

REACTIONS (3)
  - Acute kidney injury [None]
  - Acute respiratory failure [None]
  - Hypotension [None]

NARRATIVE: CASE EVENT DATE: 20201009
